FAERS Safety Report 20134073 (Version 1)
Quarter: 2021Q4

REPORT INFORMATION
  Report Type: Spontaneous
  Country: BE (occurrence: BE)
  Receive Date: 20211201
  Receipt Date: 20211201
  Transmission Date: 20220303
  Serious: Yes (Hospitalization, Other)
  Sender: FDA-Public Use
  Company Number: BE-ASTELLAS-2021US045762

PATIENT
  Age: 55 Year
  Sex: Female

DRUGS (5)
  1. TACROLIMUS [Suspect]
     Active Substance: TACROLIMUS
     Indication: Renal transplant
     Dosage: UNK UNK, UNKNOWN FREQ.
     Route: 065
     Dates: start: 2018
  2. TACROLIMUS [Suspect]
     Active Substance: TACROLIMUS
     Indication: Liver transplant
     Dosage: UNK UNK, UNKNOWN FREQ.
     Route: 065
     Dates: start: 2019, end: 2019
  3. TACROLIMUS [Suspect]
     Active Substance: TACROLIMUS
     Dosage: UNK UNK, UNKNOWN FREQ.
     Route: 065
     Dates: start: 2019
  4. MYCOPHENOLATE MOFETIL [Concomitant]
     Active Substance: MYCOPHENOLATE MOFETIL
     Indication: Renal transplant
     Dosage: UNK UNK, UNKNOWN FREQ.
     Route: 065
     Dates: start: 2018
  5. MYCOPHENOLATE MOFETIL [Concomitant]
     Active Substance: MYCOPHENOLATE MOFETIL
     Indication: Liver transplant
     Dosage: UNK UNK, UNKNOWN FREQ.
     Route: 065
     Dates: start: 2019

REACTIONS (15)
  - Pathogen resistance [Recovering/Resolving]
  - Cholangitis infective [Recovering/Resolving]
  - Enterococcal infection [Recovering/Resolving]
  - Pseudomonas infection [Recovering/Resolving]
  - Bacteraemia [Recovering/Resolving]
  - Klebsiella infection [Recovering/Resolving]
  - Klebsiella infection [Recovering/Resolving]
  - Pseudomonas infection [Recovering/Resolving]
  - Stenotrophomonas infection [Recovering/Resolving]
  - Citrobacter infection [Recovering/Resolving]
  - Hepatic cyst infection [Recovering/Resolving]
  - Liver abscess [Recovered/Resolved]
  - Enterococcal infection [Recovered/Resolved]
  - Sepsis [Recovering/Resolving]
  - Infection [Recovering/Resolving]

NARRATIVE: CASE EVENT DATE: 20180101
